FAERS Safety Report 24996143 (Version 1)
Quarter: 2025Q1

REPORT INFORMATION
  Report Type: Spontaneous
  Country: GB (occurrence: GB)
  Receive Date: 20250221
  Receipt Date: 20250221
  Transmission Date: 20250409
  Serious: Yes (Death, Hospitalization, Other)
  Sender: JOHNSON AND JOHNSON
  Company Number: GB-JNJFOC-20250246847

PATIENT
  Age: 62 Year
  Sex: Female

DRUGS (2)
  1. INFLIXIMAB [Suspect]
     Active Substance: INFLIXIMAB
     Indication: Behcet^s syndrome
     Route: 041
  2. PREDNISOLONE [Suspect]
     Active Substance: PREDNISOLONE
     Indication: Behcet^s syndrome
     Route: 065

REACTIONS (7)
  - Haemorrhage intracranial [Fatal]
  - Acquired dysfibrinogenaemia [Unknown]
  - Pulmonary embolism [Unknown]
  - Chest wall haematoma [Unknown]
  - Pneumocystis jirovecii infection [Unknown]
  - Abdominal wall haematoma [Unknown]
  - Off label use [Unknown]
